FAERS Safety Report 23834896 (Version 3)
Quarter: 2024Q3

REPORT INFORMATION
  Report Type: Spontaneous
  Country: US (occurrence: US)
  Receive Date: 20240509
  Receipt Date: 20240903
  Transmission Date: 20241016
  Serious: No
  Sender: BRISTOL MYERS SQUIBB
  Company Number: US-BRISTOL-MYERS SQUIBB COMPANY-2024-071906

PATIENT
  Age: 61 Year
  Sex: Female

DRUGS (1)
  1. REVLIMID [Suspect]
     Active Substance: LENALIDOMIDE
     Indication: Plasma cell myeloma
     Route: 048
     Dates: start: 201706

REACTIONS (7)
  - Diarrhoea [Unknown]
  - Muscle spasms [Unknown]
  - Amnesia [Unknown]
  - Vitamin B12 decreased [Unknown]
  - White blood cell count increased [Unknown]
  - Faeces discoloured [Unknown]
  - Blood potassium decreased [Unknown]
